FAERS Safety Report 7729955-4 (Version None)
Quarter: 2011Q3

REPORT INFORMATION
  Report Type: 
  Country: None (occurrence: None)
  Receive Date: 20110906
  Receipt Date: 20110902
  Transmission Date: 20111222
  Serious: Yes (Other)
  Sender: FDA-Public Use
  Company Number: US-PFIZER INC-2011206037

PATIENT
  Sex: Male

DRUGS (4)
  1. ALPRAZOLAM [Suspect]
     Dosage: UNK
     Route: 048
     Dates: end: 20110827
  2. PROPRANOLOL [Concomitant]
     Indication: HYPERTENSION
     Dosage: UNK
  3. SIMVASTATIN [Concomitant]
     Indication: BLOOD CHOLESTEROL INCREASED
     Dosage: UNK
  4. ALPRAZOLAM [Suspect]
     Indication: ANXIETY
     Dosage: 1 MG, THREE OR FOUR TIMES A WEEK
     Route: 048
     Dates: start: 20090601

REACTIONS (5)
  - DEPRESSION [None]
  - HYPERSENSITIVITY [None]
  - SWELLING FACE [None]
  - URTICARIA [None]
  - DEPRESSED MOOD [None]
